FAERS Safety Report 9889466 (Version 1)
Quarter: 2014Q1

REPORT INFORMATION
  Report Type: Spontaneous
  Country: FR (occurrence: FR)
  Receive Date: 20140211
  Receipt Date: 20140211
  Transmission Date: 20141002
  Serious: Yes (Hospitalization)
  Sender: FDA-Public Use
  Company Number: FR-ASTRAZENECA-2014SE08779

PATIENT
  Age: 29812 Day
  Sex: Male
  Weight: 79 kg

DRUGS (3)
  1. ATACAND [Suspect]
     Indication: ARRHYTHMIA
     Route: 048
     Dates: end: 20131027
  2. RAMIPRIL [Interacting]
     Indication: ARRHYTHMIA
     Route: 048
     Dates: end: 20131027
  3. AMIODARONE [Concomitant]
     Indication: ARRHYTHMIA
     Route: 048
     Dates: end: 20131108

REACTIONS (4)
  - Drug interaction [Unknown]
  - Confusional state [Recovered/Resolved]
  - Hyponatraemia [Recovered/Resolved]
  - Off label use [Unknown]
